FAERS Safety Report 5466857-0 (Version None)
Quarter: 2007Q3

REPORT INFORMATION
  Report Type: 
  Country: None (occurrence: None)
  Receive Date: 20070925
  Receipt Date: 20070919
  Transmission Date: 20080115
  Serious: Yes (Hospitalization)
  Sender: FDA-Public Use
  Company Number: JP-AVENTIS-200712489JP

PATIENT

DRUGS (1)
  1. ALLEGRA [Suspect]
     Route: 048

REACTIONS (2)
  - JAUNDICE [None]
  - LIVER DISORDER [None]
